FAERS Safety Report 9527524 (Version 1)
Quarter: 2013Q3

REPORT INFORMATION
  Report Type: Spontaneous
  Country: US (occurrence: None)
  Receive Date: 20130913
  Receipt Date: 20130913
  Transmission Date: 20140515
  Serious: Yes (Life-Threatening, Disabling)
  Sender: FDA-Public Use
  Company Number: None

PATIENT
  Age: 59 Year
  Sex: Female
  Weight: 86.18 kg

DRUGS (6)
  1. ZOCOR [Suspect]
     Indication: BLOOD CHOLESTEROL INCREASED
     Route: 048
     Dates: start: 2005, end: 201302
  2. HCTZ [Concomitant]
  3. VERAPAMIL [Concomitant]
  4. DULCOLAX [Concomitant]
  5. ASA [Concomitant]
  6. SWISS KRISS [Concomitant]

REACTIONS (11)
  - Fatigue [None]
  - Peroneal nerve palsy [None]
  - Muscular weakness [None]
  - Progressive muscular atrophy [None]
  - Gait disturbance [None]
  - Decreased activity [None]
  - Sensation of heaviness [None]
  - Myalgia [None]
  - Emotional disorder [None]
  - Gingival disorder [None]
  - Adverse event [None]
